FAERS Safety Report 11696033 (Version 1)
Quarter: 2015Q4

REPORT INFORMATION
  Report Type: Spontaneous
  Country: KR (occurrence: KR)
  Receive Date: 20151104
  Receipt Date: 20151104
  Transmission Date: 20160304
  Serious: Yes (Other)
  Sender: FDA-Public Use
  Company Number: KR-WATSON-2015-21148

PATIENT
  Age: 53 Year
  Sex: Male

DRUGS (1)
  1. HEPARIN SODIUM (UNKNOWN) [Suspect]
     Active Substance: HEPARIN SODIUM
     Indication: ANTICOAGULANT THERAPY
     Dosage: 5000 IU, Q24H
     Route: 041

REACTIONS (1)
  - Spontaneous haematoma [Recovering/Resolving]
